FAERS Safety Report 12393086 (Version 3)
Quarter: 2016Q3

REPORT INFORMATION
  Report Type: Spontaneous
  Country: US (occurrence: US)
  Receive Date: 20160523
  Receipt Date: 20160726
  Transmission Date: 20161109
  Serious: No
  Sender: FDA-Public Use
  Company Number: US-PFIZER INC-2015294099

PATIENT
  Age: 71 Year
  Sex: Male

DRUGS (14)
  1. AZITHROMYCIN ANHYDROUS. [Concomitant]
     Active Substance: AZITHROMYCIN ANHYDROUS
     Dosage: UNK
  2. DORZOL/TIMOL [Concomitant]
     Dosage: UNK (DORZOLAMIDE HYDROCHLORIDE: 2%, TIMOLOL MALEATE: 0.5%)
     Route: 047
  3. DEXAMETHASON [Concomitant]
     Active Substance: DEXAMETHASONE
     Dosage: 4 MG, UNK
  4. HYDROCO/APAP [Concomitant]
     Active Substance: ACETAMINOPHEN\HYDROCODONE
     Dosage: UNK (HYDROCODONE BITARTRATE: 10MG, PARACETAMOL: 325MG)
  5. COMBIGAN [Concomitant]
     Active Substance: BRIMONIDINE TARTRATE\TIMOLOL MALEATE
     Dosage: UNK (BRIMONIDINE TARTRATE: 0.2%, TIMOLOL MALEATE: 0.5%)
  6. SUTENT [Suspect]
     Active Substance: SUNITINIB MALATE
     Indication: RENAL CANCER
     Dosage: 37.5 MG, CYCLIC (EVERY DAY FOR 3 WEEKS AND 2 WEEKS OFF/ONCE A DAY 21 DAYS)
     Route: 048
     Dates: start: 2013
  7. METOPRL /HCTZ [Concomitant]
     Dosage: UNK (METOPROLOL-50 MG, HYDROCHLOROTHIAZIDE-25MG)
  8. SERTRALINE [Concomitant]
     Active Substance: SERTRALINE HYDROCHLORIDE
     Dosage: 100 MG, UNK
  9. ONDANSETRON [Concomitant]
     Active Substance: ONDANSETRON
     Dosage: 8 MG, UNK
  10. TRIAMCINOLON [Concomitant]
     Dosage: 0.1 %, UNK
  11. PRAVASTATIN. [Concomitant]
     Active Substance: PRAVASTATIN
     Dosage: 40 MG, UNK
  12. LATANOPROST. [Concomitant]
     Active Substance: LATANOPROST
     Dosage: 0.005 %, UNK
  13. LOSARTAN POTASSIUM. [Concomitant]
     Active Substance: LOSARTAN POTASSIUM
     Dosage: 100 MG, UNK
  14. ALLOPURINOL. [Concomitant]
     Active Substance: ALLOPURINOL
     Dosage: 300 MG, UNK

REACTIONS (7)
  - Nausea [Not Recovered/Not Resolved]
  - Disease progression [Unknown]
  - Renal cancer [Unknown]
  - Diarrhoea [Not Recovered/Not Resolved]
  - Pruritus [Not Recovered/Not Resolved]
  - Fatigue [Not Recovered/Not Resolved]
  - Swelling [Not Recovered/Not Resolved]
